FAERS Safety Report 7956373-6 (Version None)
Quarter: 2011Q4

REPORT INFORMATION
  Report Type: 
  Country: None (occurrence: None)
  Receive Date: 20111205
  Receipt Date: 20111130
  Transmission Date: 20120403
  Serious: Yes (Other)
  Sender: FDA-Public Use
  Company Number: DK-PFIZER INC-2010157670

PATIENT
  Age: 70 Year
  Sex: Male

DRUGS (8)
  1. CORTICOSTEROIDS [Concomitant]
     Indication: NEOPLASM MALIGNANT
     Dosage: UNK
     Dates: start: 20100121
  2. ESCITALOPRAM [Concomitant]
     Indication: DEPRESSION
     Dosage: 5 MG, 1X/DAY
  3. OMEPRAZOLE [Concomitant]
     Dosage: 40 MG, 1X/DAY
  4. REMERON [Concomitant]
     Indication: DEPRESSION
     Dosage: 15 MG, 1X/DAY
  5. ZOLEDRONIC ACID [Suspect]
     Indication: METASTASES TO BONE
     Dosage: 4 MG, EVERY 6 WEEKS
     Dates: start: 20100301, end: 20100301
  6. PREDNISOLONE [Concomitant]
     Dosage: 25 MG, 1X/DAY
  7. SUNITINIB MALATE [Suspect]
     Indication: METASTATIC RENAL CELL CARCINOMA
     Dosage: 50 MG, EVERY TWO WEEKS (FOR 4 WEEKS)
     Route: 048
     Dates: start: 20091207
  8. AMLODIPINE [Concomitant]
     Indication: HYPERTENSION
     Dosage: 10 MG, 1X/DAY

REACTIONS (8)
  - PAIN [None]
  - OSTEONECROSIS OF JAW [None]
  - OEDEMA MOUTH [None]
  - ORAL DISORDER [None]
  - ORAL MUCOSAL ERYTHEMA [None]
  - EXPOSED BONE IN JAW [None]
  - PALPITATIONS [None]
  - PAIN IN JAW [None]
